FAERS Safety Report 7564810-4 (Version None)
Quarter: 2011Q2

REPORT INFORMATION
  Report Type: 
  Country: None (occurrence: None)
  Receive Date: 20110622
  Receipt Date: 20101220
  Transmission Date: 20111010
  Serious: Yes (Other)
  Sender: FDA-Public Use
  Company Number: US-MYLANLABS-2010S1022389

PATIENT
  Age: 41 Year
  Sex: Male
  Weight: 86.18 kg

DRUGS (10)
  1. CLOZAPINE [Suspect]
     Indication: SCHIZOPHRENIA
     Route: 048
     Dates: end: 20101201
  2. LACTULOSE [Concomitant]
     Route: 048
  3. LORATADINE [Concomitant]
     Route: 048
  4. CHANTIX [Concomitant]
     Route: 048
  5. FLUPHENAZINE DECANOATE [Concomitant]
     Route: 030
  6. DETROL [Concomitant]
     Route: 048
  7. BUPROPION HCL [Concomitant]
     Route: 048
  8. LITHIUM [Concomitant]
     Route: 048
  9. TRIHEXYPHENIDYL HCL [Concomitant]
     Route: 048
  10. SENNA [Concomitant]
     Route: 048

REACTIONS (2)
  - AGRANULOCYTOSIS [None]
  - GRANULOCYTOPENIA [None]
